FAERS Safety Report 6100065-5 (Version None)
Quarter: 2009Q1

REPORT INFORMATION
  Report Type: 
  Country: None (occurrence: None)
  Receive Date: 20090303
  Receipt Date: 20090227
  Transmission Date: 20090719
  Serious: Yes (Hospitalization)
  Sender: FDA-Public Use
  Company Number: B0562007A

PATIENT
  Sex: Female

DRUGS (3)
  1. VALTREX [Suspect]
     Indication: DRUG USE FOR UNKNOWN INDICATION
     Route: 048
  2. IMURAN [Concomitant]
     Route: 048
  3. INFLUENZA HA VACCINE [Concomitant]
     Route: 058

REACTIONS (7)
  - CHILLS [None]
  - HAEMATOMA [None]
  - LOSS OF CONSCIOUSNESS [None]
  - MUSCULOSKELETAL STIFFNESS [None]
  - NAUSEA [None]
  - PILOERECTION [None]
  - RESPIRATORY ARREST [None]
